FAERS Safety Report 8048154-2 (Version None)
Quarter: 2012Q1

REPORT INFORMATION
  Report Type: 
  Country: None (occurrence: None)
  Receive Date: 20120117
  Receipt Date: 20120105
  Transmission Date: 20120608
  Serious: Yes (Other)
  Sender: FDA-Public Use
  Company Number: CA-JNJFOC-20120105542

PATIENT
  Sex: Female
  Weight: 58.2 kg

DRUGS (4)
  1. ACETAMINOPHEN [Concomitant]
  2. REMICADE [Suspect]
     Route: 042
     Dates: start: 20111110
  3. CIPROFLOXACIN [Suspect]
     Indication: ANAL FISTULA
     Route: 048
     Dates: start: 20111201
  4. REMICADE [Suspect]
     Indication: CROHN'S DISEASE
     Route: 042
     Dates: start: 20100902

REACTIONS (4)
  - PALPITATIONS [None]
  - DECREASED APPETITE [None]
  - DYSPNOEA [None]
  - ANAL FISTULA [None]
